FAERS Safety Report 9510549 (Version 3)
Quarter: 2013Q3

REPORT INFORMATION
  Report Type: Report from Study
  Country: BD (occurrence: BD)
  Receive Date: 20130909
  Receipt Date: 20130911
  Transmission Date: 20140515
  Serious: Yes (Death, Hospitalization, Other)
  Sender: FDA-Public Use
  Company Number: PHHY2013BD095032

PATIENT
  Age: 64 Year
  Sex: Male

DRUGS (4)
  1. ACLASTA [Suspect]
     Indication: OSTEOPOROSIS
     Dosage: 5 MG/100ML
     Route: 042
     Dates: start: 20091021
  2. ACLASTA [Suspect]
     Dosage: 5 MG/100ML
     Route: 042
     Dates: start: 20120527
  3. ANTIHYPERTENSIVE DRUGS [Concomitant]
     Indication: HYPERTENSION
     Dosage: UNK UKN, UNK
  4. CALCIUM [Concomitant]
     Indication: CALCIUM DEFICIENCY
     Dosage: UNK UKN, UNK

REACTIONS (3)
  - Pyrexia [Fatal]
  - Tooth loss [Unknown]
  - Back pain [Unknown]
